FAERS Safety Report 6557635-X (Version None)
Quarter: 2010Q1

REPORT INFORMATION
  Report Type: 
  Country: None (occurrence: None)
  Receive Date: 20100129
  Receipt Date: 20091108
  Transmission Date: 20100710
  Serious: No
  Sender: FDA-Public Use
  Company Number: A0816646A

PATIENT

DRUGS (1)
  1. FLOVENT DISKUS 100 [Suspect]
     Indication: DRUG USE FOR UNKNOWN INDICATION
     Route: 055

REACTIONS (7)
  - CHEILITIS [None]
  - GLOSSITIS [None]
  - GLOSSODYNIA [None]
  - LIP PAIN [None]
  - MOUTH ULCERATION [None]
  - ORAL PAIN [None]
  - STOMATITIS [None]
